FAERS Safety Report 10301479 (Version 1)
Quarter: 2014Q3

REPORT INFORMATION
  Report Type: Spontaneous
  Country: IT (occurrence: IT)
  Receive Date: 20140714
  Receipt Date: 20140714
  Transmission Date: 20150326
  Serious: Yes (Hospitalization)
  Sender: FDA-Public Use
  Company Number: IT-TEVA-493768ISR

PATIENT
  Sex: Male

DRUGS (1)
  1. KETOPROFEN. [Suspect]
     Active Substance: KETOPROFEN
     Route: 065

REACTIONS (5)
  - Hypersensitivity [Unknown]
  - Anaphylactic reaction [Unknown]
  - Chest pain [Unknown]
  - Kounis syndrome [Not Recovered/Not Resolved]
  - Bronchospasm [Unknown]
